FAERS Safety Report 15287144 (Version 6)
Quarter: 2024Q1

REPORT INFORMATION
  Report Type: Other
  Country: GB (occurrence: None)
  Receive Date: 20180817
  Receipt Date: 20240103
  Transmission Date: 20240410
  Serious: Yes (Hospitalization, Other)
  Sender: FDA-Public Use
  Company Number: GB-ROCHE-2053535

PATIENT
  Age: 79 Year
  Sex: Female

DRUGS (2)
  1. TOCILIZUMAB [Suspect]
     Active Substance: TOCILIZUMAB
     Indication: Rheumatoid arthritis
     Route: 058
     Dates: start: 20170912
  2. MOVICOL [Concomitant]
     Active Substance: POLYETHYLENE GLYCOL 3350\POTASSIUM CHLORIDE\SODIUM BICARBONATE\SODIUM CHLORIDE

REACTIONS (20)
  - Anxiety [Unknown]
  - Scar [Unknown]
  - Pain in extremity [Unknown]
  - Back pain [Unknown]
  - Hysterectomy [Unknown]
  - Gangrene [Unknown]
  - Malaise [Unknown]
  - Gastrointestinal disorder [Unknown]
  - Drug ineffective [Unknown]
  - Urinary tract infection [Unknown]
  - Herpes virus infection [Unknown]
  - Intercepted product storage error [Unknown]
  - Infection [Unknown]
  - Immunodeficiency [Unknown]
  - Intestinal gangrene [Unknown]
  - Nasopharyngitis [Unknown]
  - Infection [Unknown]
  - Immunosuppression [Unknown]
  - Musculoskeletal stiffness [Unknown]
  - Pain in extremity [Unknown]
